FAERS Safety Report 6941263-8 (Version None)
Quarter: 2010Q3

REPORT INFORMATION
  Report Type: 
  Country: None (occurrence: None)
  Receive Date: 20100825
  Receipt Date: 20100728
  Transmission Date: 20110219
  Serious: No
  Sender: FDA-Public Use
  Company Number: US-BRISTOL-MYERS SQUIBB COMPANY-15213663

PATIENT
  Age: 61 Year
  Sex: Female
  Weight: 96 kg

DRUGS (4)
  1. ONGLYZA [Suspect]
     Indication: TYPE 2 DIABETES MELLITUS
     Dosage: AROUND 22-JUN-2010
     Dates: start: 20100601
  2. GLIPIZIDE [Concomitant]
     Dosage: GLIPIZIDE ER
  3. LISINOPRIL [Concomitant]
  4. LUMIGAN [Concomitant]

REACTIONS (2)
  - NAUSEA [None]
  - RENAL PAIN [None]
